FAERS Safety Report 9575262 (Version 1)
Quarter: 2013Q4

REPORT INFORMATION
  Report Type: Spontaneous
  Country: IT (occurrence: IT)
  Receive Date: 20131001
  Receipt Date: 20131001
  Transmission Date: 20140711
  Serious: Yes (Hospitalization)
  Sender: FDA-Public Use
  Company Number: IT-GLAXOSMITHKLINE-B0926483A

PATIENT
  Age: 30 Year
  Sex: Female

DRUGS (5)
  1. TROBALT [Suspect]
     Indication: PRODUCT USED FOR UNKNOWN INDICATION
     Dosage: 300MG PER DAY
     Route: 048
     Dates: start: 20130626, end: 20130824
  2. ZONEGRAN [Suspect]
     Dosage: 25MG PER DAY
  3. PANTOPRAZOLE [Suspect]
     Dosage: 20MG PER DAY
  4. ETINILESTRADIOLO [Concomitant]
  5. PLANUM [Concomitant]

REACTIONS (3)
  - Drug-induced liver injury [Recovering/Resolving]
  - Hepatitis acute [Recovering/Resolving]
  - Hepatic necrosis [Recovering/Resolving]
